FAERS Safety Report 6140652-1 (Version None)
Quarter: 2009Q1

REPORT INFORMATION
  Report Type: 
  Country: None (occurrence: None)
  Receive Date: 20090331
  Receipt Date: 20090316
  Transmission Date: 20090719
  Serious: Yes (Death, Hospitalization)
  Sender: FDA-Public Use
  Company Number: 2006002284

PATIENT
  Age: 75 Year
  Sex: Female

DRUGS (1)
  1. ERLOTINIB (ERLOTINIB HCL) (TABLET) (ERLOTINIB HCL) [Suspect]
     Indication: NON-SMALL CELL LUNG CANCER
     Dosage: 150 MG (150 MG, QD), ORAL
     Route: 048
     Dates: start: 20061018, end: 20061117

REACTIONS (2)
  - DIARRHOEA [None]
  - RESPIRATORY TRACT INFECTION [None]
